FAERS Safety Report 24266689 (Version 2)
Quarter: 2024Q4

REPORT INFORMATION
  Report Type: Report from Study
  Country: BE (occurrence: BE)
  Receive Date: 20240830
  Receipt Date: 20241113
  Transmission Date: 20250114
  Serious: Yes (Hospitalization, Other)
  Sender: JOHNSON AND JOHNSON
  Company Number: BE-JNJFOC-20240260245

PATIENT
  Sex: Female
  Weight: 63 kg

DRUGS (3)
  1. MACITENTAN [Suspect]
     Active Substance: MACITENTAN
     Indication: Pulmonary arterial hypertension
     Route: 048
     Dates: start: 20211228
  2. TADALAFIL [Concomitant]
     Active Substance: TADALAFIL
     Indication: Pulmonary arterial hypertension
     Route: 048
     Dates: start: 20230227, end: 20230502
  3. TADALAFIL [Concomitant]
     Active Substance: TADALAFIL
     Route: 048
     Dates: start: 20230502

REACTIONS (21)
  - Arteriovenous fistula operation [Recovered/Resolved]
  - End stage renal disease [Unknown]
  - Pericardial effusion [Not Recovered/Not Resolved]
  - Small intestinal obstruction [Recovered/Resolved]
  - Functional gastrointestinal disorder [Recovered/Resolved]
  - Dyspnoea [Not Recovered/Not Resolved]
  - Malnutrition [Recovering/Resolving]
  - Asthenia [Unknown]
  - Vomiting [Unknown]
  - Blood iron decreased [Unknown]
  - Serum ferritin increased [Unknown]
  - Transferrin decreased [Unknown]
  - Abdominal distension [Unknown]
  - Gastrooesophageal reflux disease [Unknown]
  - Nausea [Unknown]
  - Diarrhoea [Unknown]
  - Iron deficiency [Recovered/Resolved with Sequelae]
  - Varices oesophageal [Not Recovered/Not Resolved]
  - Large intestine polyp [Recovered/Resolved]
  - Gastrointestinal angiodysplasia [Not Recovered/Not Resolved]
  - Muscle atrophy [Not Recovered/Not Resolved]

NARRATIVE: CASE EVENT DATE: 20230502
